FAERS Safety Report 6185962-7 (Version None)
Quarter: 2009Q2

REPORT INFORMATION
  Report Type: 
  Country: None (occurrence: None)
  Receive Date: 20090511
  Receipt Date: 20090504
  Transmission Date: 20091009
  Serious: Yes (Hospitalization, Other)
  Sender: FDA-Public Use
  Company Number: US-ELI_LILLY_AND_COMPANY-US200905000801

PATIENT
  Sex: Male

DRUGS (13)
  1. HUMALOG [Suspect]
     Indication: TYPE 2 DIABETES MELLITUS
     Dosage: UNK, AS NEEDED
  2. HUMULIN N [Suspect]
     Indication: TYPE 2 DIABETES MELLITUS
  3. AMBIEN [Concomitant]
     Dates: end: 20090503
  4. CYMBALTA [Concomitant]
  5. LANTUS [Concomitant]
     Dosage: 50 U, EACH EVENING
     Dates: start: 20090301
  6. NOVOLOG [Concomitant]
     Dosage: UNK, AS NEEDED
  7. LISINOPRIL [Concomitant]
  8. TRAZODONE HCL [Concomitant]
  9. DEMADEX [Concomitant]
     Indication: OEDEMA
  10. LASIX [Concomitant]
     Indication: OEDEMA
  11. SIMVASTATIN [Concomitant]
     Indication: BLOOD CHOLESTEROL INCREASED
  12. MORPHINE [Concomitant]
  13. NOVOLIN N [Concomitant]

REACTIONS (20)
  - ADVERSE DRUG REACTION [None]
  - AMNESIA [None]
  - ANOREXIA [None]
  - BLOOD CHOLESTEROL INCREASED [None]
  - BLOOD GLUCOSE DECREASED [None]
  - BLOOD GLUCOSE INCREASED [None]
  - CONFUSIONAL STATE [None]
  - DELIRIUM [None]
  - DEMENTIA [None]
  - DYSURIA [None]
  - FATIGUE [None]
  - HYPERHIDROSIS [None]
  - HYPOGLYCAEMIC UNCONSCIOUSNESS [None]
  - LAZINESS [None]
  - LETHARGY [None]
  - OEDEMA [None]
  - SCIATICA [None]
  - SPINAL COLUMN STENOSIS [None]
  - WEIGHT DECREASED [None]
  - WEIGHT INCREASED [None]
